FAERS Safety Report 8533908-6 (Version None)
Quarter: 2012Q3

REPORT INFORMATION
  Report Type: 
  Country: None (occurrence: None)
  Receive Date: 20120724
  Receipt Date: 20120711
  Transmission Date: 20120928
  Serious: Yes (Death, Hospitalization)
  Sender: FDA-Public Use
  Company Number: ES-ROCHE-1087364

PATIENT
  Sex: Female

DRUGS (3)
  1. TAXOL [Suspect]
     Indication: BREAST CANCER METASTATIC
  2. VINORELBINE [Suspect]
     Indication: BREAST CANCER METASTATIC
  3. HERCEPTIN [Suspect]
     Indication: BREAST CANCER METASTATIC

REACTIONS (2)
  - RESPIRATORY FAILURE [None]
  - PULMONARY TOXICITY [None]
